FAERS Safety Report 15707272 (Version 1)
Quarter: 2018Q4

REPORT INFORMATION
  Report Type: Spontaneous
  Country: CA (occurrence: CA)
  Receive Date: 20181210
  Receipt Date: 20181210
  Transmission Date: 20190205
  Serious: Yes (Hospitalization)
  Sender: FDA-Public Use
  Company Number: CA-CELLTRION INC.-2018CA024548

PATIENT

DRUGS (10)
  1. INFLECTRA [Suspect]
     Active Substance: INFLIXIMAB-DYYB
     Dosage: UNK; UNKNOWN
     Route: 065
     Dates: start: 20180807
  2. METHYLPREDNISOLONE. [Concomitant]
     Active Substance: METHYLPREDNISOLONE
  3. PREDNISONE. [Concomitant]
     Active Substance: PREDNISONE
  4. INFLECTRA [Suspect]
     Active Substance: INFLIXIMAB-DYYB
     Dosage: 300 MG, (EVERY 0, 2, 6 WEEKS THEN EVERY 8 WEEKS); INTRAVENOUS
     Route: 042
     Dates: start: 20181127
  5. MEZAVANT [Concomitant]
     Active Substance: MESALAMINE
     Dosage: UNK
     Dates: start: 201802
  6. VANCOMYCIN [Concomitant]
     Active Substance: VANCOMYCIN
  7. INFLECTRA [Suspect]
     Active Substance: INFLIXIMAB-DYYB
     Dosage: UNK; UNKNOWN
     Route: 065
     Dates: start: 20181002
  8. INFLECTRA [Suspect]
     Active Substance: INFLIXIMAB-DYYB
     Indication: COLITIS ULCERATIVE
     Dosage: 300 MG, (EVERY 0, 2, 6 WEEKS THEN EVERY 8 WEEKS); INTRAVENOUS
     Route: 042
     Dates: start: 20180621, end: 20180621
  9. MESALAZINE [Concomitant]
     Active Substance: MESALAMINE
     Dosage: UNK
  10. ACETAMINOPHEN. [Concomitant]
     Active Substance: ACETAMINOPHEN

REACTIONS (3)
  - Product use issue [Unknown]
  - Heart rate irregular [Unknown]
  - Spinal disorder [Unknown]

NARRATIVE: CASE EVENT DATE: 20181127
